FAERS Safety Report 8565315 (Version 4)
Quarter: 2012Q4

REPORT INFORMATION
  Report Type: 
  Country: GB (occurrence: GB)
  Receive Date: 20120516
  Receipt Date: 20121204
  Transmission Date: 20130627
  Serious: Yes (Death, Other)
  Sender: FDA-Public Use
  Company Number: GB-ROCHE-1068617

PATIENT
  Age: 24 Year
  Sex: Male

DRUGS (2)
  1. ROACCUTANE [Suspect]
     Indication: ACNE CYSTIC
     Route: 065
  2. ROACCUTANE [Suspect]
     Route: 065
     Dates: start: 2009

REACTIONS (11)
  - Completed suicide [Fatal]
  - Depression [Unknown]
  - Sexual dysfunction [Unknown]
  - Mental impairment [Unknown]
  - Back pain [Unknown]
  - Dry skin [Unknown]
  - Mood swings [Unknown]
  - Paranoia [Unknown]
  - Arthralgia [Unknown]
  - Psychiatric symptom [Unknown]
  - Feeling abnormal [Unknown]
